FAERS Safety Report 13880009 (Version 1)
Quarter: 2017Q3

REPORT INFORMATION
  Report Type: Spontaneous
  Country: US (occurrence: None)
  Receive Date: 20170815
  Receipt Date: 20170815
  Transmission Date: 20171127
  Serious: Yes (Hospitalization)
  Sender: FDA-Public Use
  Company Number: None

PATIENT
  Sex: Male
  Weight: 113 kg

DRUGS (6)
  1. RESTORLAX [Concomitant]
  2. SYNTHROID [Concomitant]
     Active Substance: LEVOTHYROXINE SODIUM
  3. 5-FLUOROURACIL (5-FU) [Suspect]
     Active Substance: FLUOROURACIL
     Dates: end: 20160726
  4. METFORMIN [Concomitant]
     Active Substance: METFORMIN HYDROCHLORIDE
  5. SENOSIDE [Concomitant]
  6. NOVOLIN NPH [Concomitant]
     Active Substance: INSULIN HUMAN

REACTIONS (2)
  - Post procedural complication [None]
  - Pelvic abscess [None]

NARRATIVE: CASE EVENT DATE: 20161019
